FAERS Safety Report 8509013 (Version 2)
Quarter: 2013Q2

REPORT INFORMATION
  Report Type: Spontaneous
  Country: US (occurrence: US)
  Receive Date: 20120412
  Receipt Date: 20130603
  Transmission Date: 20140414
  Serious: Yes (Hospitalization, Other)
  Sender: FDA-Public Use
  Company Number: US-ASTRAZENECA-2011SE59509

PATIENT
  Age: 79 Year
  Sex: Female

DRUGS (1)
  1. NEXIUM [Suspect]
     Route: 048

REACTIONS (6)
  - Eye disorder [Unknown]
  - Cerebrovascular accident [Unknown]
  - Malaise [Unknown]
  - Gastric disorder [Unknown]
  - Malaise [Unknown]
  - Drug dose omission [Unknown]
